FAERS Safety Report 5465655-1 (Version None)
Quarter: 2007Q3

REPORT INFORMATION
  Report Type: 
  Country: None (occurrence: None)
  Receive Date: 20070919
  Receipt Date: 20070919
  Transmission Date: 20080115
  Serious: Yes (Hospitalization)
  Sender: FDA-Public Use
  Company Number: None

PATIENT
  Age: 86 Year
  Sex: Male
  Weight: 55 kg

DRUGS (12)
  1. VAMIN 14 ELECTROLYTE FREE (VAMIN) (AMINO ACIDS) [Suspect]
     Indication: PARENTERAL NUTRITION
     Dosage: 1 IN 2 DAY, INTRAVENOUS DRIP
     Route: 041
     Dates: start: 20070724, end: 20070726
  2. INTRALIPID 20% [Suspect]
     Indication: PARENTERAL NUTRITION
     Dosage: 1 IN 2 D, INTRAVENOUS DRIP
     Route: 041
     Dates: start: 20070724, end: 20070726
  3. GLUCOSE 50% (MANUFACTURER UNKNOWN) (GLUCOSE) (GLUCOSE) [Suspect]
     Indication: PARENTERAL NUTRITION
     Dosage: 1 IN 2 D, INTRAVENOUS DRIP
     Route: 041
     Dates: start: 20070724, end: 20070726
  4. CIPROXIN (CIPROFLOXACIN) (CIPROFLOXACIN) [Concomitant]
  5. TRIBEMIN (NEUROBION FOR INJECTION) (NEUROBION) [Concomitant]
  6. FOLIC ACID (FOLIC ACID) (FOLIC ACID) [Concomitant]
  7. ALPHA D3 (ALFACALCIDOL) (ALFACALCIDOL) [Concomitant]
  8. LOSEC (OMEPAZOLE) (OMEPRAZOLE) [Concomitant]
  9. FLAGYL (METRONIDAZOLE) (METRONIDAZOLE) [Concomitant]
  10. VENOFER (SACCHARATED IRON OXIDE) (SACCHARATED IRON OXIDE) [Concomitant]
  11. EPREX (ERYTHROPOIETIN (ERYTHROPOIETIN) [Concomitant]
  12. CLEXANE (HEPARIN-FRACTION, SODIUM SALT) (HEPARIN-FRACTION) [Concomitant]

REACTIONS (2)
  - PANCREATITIS ACUTE [None]
  - SEPSIS [None]
